FAERS Safety Report 17182981 (Version 1)
Quarter: 2019Q4

REPORT INFORMATION
  Report Type: Spontaneous
  Country: FR (occurrence: FR)
  Receive Date: 20191220
  Receipt Date: 20191220
  Transmission Date: 20200122
  Serious: Yes (Life-Threatening)
  Sender: FDA-Public Use
  Company Number: FR-MYLANLABS-2019M1125357

PATIENT
  Age: 68 Year
  Sex: Male
  Weight: 60 kg

DRUGS (4)
  1. MYLAN REMIFENTANIL [Suspect]
     Active Substance: REMIFENTANIL
     Indication: INDUCTION OF ANAESTHESIA
     Dosage: 12 MILLIGRAM, TOTAL
     Route: 042
     Dates: start: 20190801, end: 20190801
  2. DEXAMETHASONE MYLAN [Suspect]
     Active Substance: DEXAMETHASONE
     Indication: INDUCTION OF ANAESTHESIA
     Dosage: 8 MILLIGRAM, TOTAL
     Route: 042
     Dates: start: 20190801, end: 20190801
  3. PROPOFOL. [Suspect]
     Active Substance: PROPOFOL
     Indication: INDUCTION OF ANAESTHESIA
     Dosage: 140 MILLIGRAM, TOTAL
     Route: 042
     Dates: start: 20190801, end: 20190801
  4. CISATRACURIUM MYLAN [Suspect]
     Active Substance: CISATRACURIUM
     Indication: INDUCTION OF ANAESTHESIA
     Dosage: 9 MILLIGRAM, TOTAL
     Route: 042
     Dates: start: 20190801, end: 20190801

REACTIONS (3)
  - Oedema [Recovered/Resolved]
  - Urticaria [Recovered/Resolved]
  - Anaphylactic shock [Recovered/Resolved]

NARRATIVE: CASE EVENT DATE: 20190801
